FAERS Safety Report 4605081-8 (Version None)
Quarter: 2005Q1

REPORT INFORMATION
  Report Type: 
  Country: None (occurrence: None)
  Receive Date: 20050217
  Receipt Date: 20041215
  Transmission Date: 20050727
  Serious: No
  Sender: FDA-Public Use
  Company Number: S04-USA-07792-01

PATIENT
  Sex: Female

DRUGS (5)
  1. NAMENDA [Suspect]
     Dosage: 10 MG QD PO
     Route: 048
     Dates: start: 20041207
  2. NAMENDA [Suspect]
     Dosage: 5 MG QD PO
     Route: 048
     Dates: start: 20041001, end: 20041001
  3. NAMENDA [Suspect]
     Dosage: 10 MG QD PO
     Route: 048
     Dates: start: 20041001, end: 20041001
  4. NAMENDA [Suspect]
     Dosage: 15 MG QD PO
     Route: 048
     Dates: start: 20041001, end: 20041001
  5. NAMENDA [Suspect]
     Dosage: 10 MG BID PO
     Route: 048
     Dates: start: 20041001, end: 20041001

REACTIONS (1)
  - DIZZINESS [None]
